FAERS Safety Report 8275784-5 (Version None)
Quarter: 2012Q2

REPORT INFORMATION
  Report Type: 
  Country: None (occurrence: None)
  Receive Date: 20120410
  Receipt Date: 20120410
  Transmission Date: 20120825
  Serious: No
  Sender: FDA-Public Use
  Company Number: None

PATIENT
  Age: 64 Year
  Sex: Male
  Weight: 86.2 kg

DRUGS (1)
  1. METHADONE HCL [Suspect]
     Indication: ARTHRALGIA
     Dosage: 40 MG TID PO
     Route: 048
     Dates: start: 20051213, end: 20111026

REACTIONS (1)
  - ELECTROCARDIOGRAM QT PROLONGED [None]
